FAERS Safety Report 16576785 (Version 1)
Quarter: 2019Q3

REPORT INFORMATION
  Report Type: Spontaneous
  Country: US (occurrence: US)
  Receive Date: 20190716
  Receipt Date: 20190716
  Transmission Date: 20191004
  Serious: Yes (Other)
  Sender: FDA-Public Use
  Company Number: US-APOTEX-2019AP018242

PATIENT
  Age: 7 Year
  Sex: Female

DRUGS (8)
  1. BUDESONIDE. [Suspect]
     Active Substance: BUDESONIDE
     Indication: PROTEIN-LOSING GASTROENTEROPATHY
     Dosage: UNK
     Route: 065
  2. IMMUNOGLOBULIN                     /00025201/ [Concomitant]
     Active Substance: HUMAN IMMUNOGLOBULIN G
     Indication: PROTEIN-LOSING GASTROENTEROPATHY
  3. SILDENAFIL. [Concomitant]
     Active Substance: SILDENAFIL
     Indication: PROTEIN-LOSING GASTROENTEROPATHY
     Dosage: UNK
     Route: 065
  4. HEPARIN [Concomitant]
     Active Substance: HEPARIN SODIUM
     Indication: PROTEIN-LOSING GASTROENTEROPATHY
     Dosage: UNK
     Route: 058
  5. MIDODRINE [Concomitant]
     Active Substance: MIDODRINE
     Indication: EVIDENCE BASED TREATMENT
  6. FUROSEMIDE. [Concomitant]
     Active Substance: FUROSEMIDE
     Indication: PROTEIN-LOSING GASTROENTEROPATHY
     Dosage: 1 MG/KG, DAILY
     Route: 065
  7. IMMUNOGLOBULIN                     /00025201/ [Concomitant]
     Active Substance: HUMAN IMMUNOGLOBULIN G
     Indication: RESPIRATORY TRACT INFECTION
     Dosage: UNK
     Route: 042
  8. MIDODRINE [Concomitant]
     Active Substance: MIDODRINE
     Indication: PROTEIN-LOSING GASTROENTEROPATHY
     Dosage: 1.25 MG, TID
     Route: 065

REACTIONS (1)
  - Cushing^s syndrome [Unknown]
